FAERS Safety Report 8953527 (Version 1)
Quarter: 2012Q4

REPORT INFORMATION
  Report Type: 
  Country: FR (occurrence: FR)
  Receive Date: 20121206
  Receipt Date: 20121206
  Transmission Date: 20130627
  Serious: Yes (Hospitalization)
  Sender: FDA-Public Use
  Company Number: FR-JNJFOC-20121114528

PATIENT
  Age: 73 Year
  Sex: Male

DRUGS (10)
  1. RISPERDAL [Suspect]
     Indication: ABNORMAL BEHAVIOUR
     Route: 065
     Dates: start: 20121002, end: 20121018
  2. TIAPRIDAL [Suspect]
     Indication: ABNORMAL BEHAVIOUR
     Route: 065
     Dates: start: 20120929, end: 20121018
  3. TEGRETOL [Suspect]
     Indication: ABNORMAL BEHAVIOUR
     Route: 065
     Dates: start: 20121002, end: 20121018
  4. KARDEGIC [Concomitant]
     Indication: PRODUCT USED FOR UNKNOWN INDICATION
     Route: 065
  5. CARDENSIEL [Concomitant]
     Indication: PRODUCT USED FOR UNKNOWN INDICATION
     Dosage: 3 tablets in the morning
  6. INEXIUM [Concomitant]
     Indication: PRODUCT USED FOR UNKNOWN INDICATION
     Dosage: 1 tablet in the evening
     Route: 065
  7. XATRAL LP [Concomitant]
     Indication: PRODUCT USED FOR UNKNOWN INDICATION
     Dosage: 1 tablet in the evening
     Route: 065
  8. FORTIMEL [Concomitant]
     Indication: PRODUCT USED FOR UNKNOWN INDICATION
     Route: 065
  9. SIMVASTATINE [Concomitant]
     Indication: PRODUCT USED FOR UNKNOWN INDICATION
     Dosage: dose 20mg : dosage 10 mg : 1/2 tablet in the evening
     Route: 065
  10. TRIATEC [Concomitant]
     Indication: PRODUCT USED FOR UNKNOWN INDICATION
     Dosage: 1 tablet in the evening
     Route: 065

REACTIONS (1)
  - Stevens-Johnson syndrome [Recovering/Resolving]
